FAERS Safety Report 16645719 (Version 1)
Quarter: 2019Q3

REPORT INFORMATION
  Report Type: Report from Study
  Country: ES (occurrence: ES)
  Receive Date: 20190730
  Receipt Date: 20190730
  Transmission Date: 20191004
  Serious: Yes (Hospitalization)
  Sender: FDA-Public Use
  Company Number: ES-ZYDUS-039144

PATIENT
  Age: 83 Year
  Sex: Male

DRUGS (4)
  1. ACENOCOUMAROL [Interacting]
     Active Substance: ACENOCOUMAROL
     Indication: ATRIAL FIBRILLATION
     Route: 048
     Dates: start: 201705, end: 20190328
  2. OMEPRAZOLE. [Suspect]
     Active Substance: OMEPRAZOLE
     Indication: PRODUCT USED FOR UNKNOWN INDICATION
     Route: 048
     Dates: start: 2000, end: 20190328
  3. TIMOLOL/TIMOLOL MALEATE/TIMOLOL MALEATE/R-ENANTIOMER/TIMOLOL MALEATE/S-ENANTIOMER [Concomitant]
     Indication: GLAUCOMA
     Route: 047
     Dates: start: 2016
  4. CIDINE [Concomitant]
     Indication: HIATUS HERNIA
     Dates: start: 201903

REACTIONS (1)
  - Haemorrhage intracranial [Recovered/Resolved]

NARRATIVE: CASE EVENT DATE: 20190328
